FAERS Safety Report 25433096 (Version 1)
Quarter: 2025Q2

REPORT INFORMATION
  Report Type: Spontaneous
  Country: US (occurrence: US)
  Receive Date: 20250613
  Receipt Date: 20250613
  Transmission Date: 20250717
  Serious: Yes (Life-Threatening, Hospitalization, Other)
  Sender: Kenvue
  Company Number: US-KENVUE-20250603490

PATIENT
  Age: 42 Year
  Sex: Male

DRUGS (2)
  1. LIDOCAINE HYDROCHLORIDE [Suspect]
     Active Substance: LIDOCAINE HYDROCHLORIDE
     Indication: Product used for unknown indication
     Route: 065
  2. FLUALPRAZOLAM [Suspect]
     Active Substance: FLUALPRAZOLAM
     Indication: Product used for unknown indication
     Route: 065

REACTIONS (7)
  - Toxicity to various agents [Unknown]
  - Blood lactic acid increased [Recovering/Resolving]
  - Acute myocardial infarction [Unknown]
  - Blood bicarbonate decreased [Unknown]
  - Blood creatine increased [Recovering/Resolving]
  - Blood pH decreased [Unknown]
  - PCO2 increased [Unknown]
